FAERS Safety Report 4978747-8 (Version None)
Quarter: 2006Q2

REPORT INFORMATION
  Report Type: 
  Country: None (occurrence: None)
  Receive Date: 20060417
  Receipt Date: 20060412
  Transmission Date: 20061013
  Serious: Yes (Hospitalization)
  Sender: FDA-Public Use
  Company Number: E044-318-3469

PATIENT
  Age: 70 Year
  Sex: Female
  Weight: 60 kg

DRUGS (10)
  1. DONEPEZIL HCL [Suspect]
     Indication: DEMENTIA
     Dosage: 5 MG, 1 IN 1 D, ORAL
     Route: 048
     Dates: start: 20030923
  2. DONEPEZIL HCL [Suspect]
     Indication: DEMENTIA
     Dosage: DOUBLEBLIND, 1 IN 1 D, ORAL
     Route: 048
     Dates: start: 20030220, end: 20030819
  3. LEVODOPA 100/25 (LEVODOPA) [Suspect]
     Indication: PARKINSON'S DISEASE
     Dosage: 500/125 MG, ORAL
     Route: 048
     Dates: start: 20020501, end: 20040518
  4. SINEMET [Suspect]
     Indication: PARKINSON'S DISEASE
     Dosage: 100/25 MG, ORAL
     Route: 048
     Dates: start: 20020101, end: 20040518
  5. MELPERONE (MELPERONE) [Suspect]
     Indication: AGITATION
     Dosage: 50 MG, ORAL
     Route: 048
     Dates: start: 20040101, end: 20040518
  6. LEVODOPA 50/12.5 (LEVODOPA) [Suspect]
     Indication: PARKINSON'S DISEASE
     Dosage: 250/75 MG, ORAL
     Route: 048
     Dates: start: 20030801, end: 20040518
  7. ASPIRIN [Concomitant]
  8. EDRONAX (REBOXETINE) [Concomitant]
  9. METOHEXAL (METOPROLOL TARTRATE) [Concomitant]
  10. QUETIAPINE FUMARATE [Concomitant]

REACTIONS (2)
  - CONDITION AGGRAVATED [None]
  - PARKINSON'S DISEASE [None]
